FAERS Safety Report 9144138 (Version 9)
Quarter: 2017Q3

REPORT INFORMATION
  Report Type: Report from Study
  Country: BR (occurrence: BR)
  Receive Date: 20130306
  Receipt Date: 20170802
  Transmission Date: 20171128
  Serious: Yes (Hospitalization, Disabling, Other)
  Sender: FDA-Public Use
  Company Number: BR-ROCHE-1083016

PATIENT
  Age: 47 Year
  Sex: Female
  Weight: 72 kg

DRUGS (42)
  1. ATENOLOL. [Concomitant]
     Active Substance: ATENOLOL
     Route: 065
  2. OMEPRAZOL [Concomitant]
     Active Substance: OMEPRAZOLE
     Indication: GASTRIC DISORDER
  3. DIAZEPAM. [Concomitant]
     Active Substance: DIAZEPAM
     Route: 065
  4. CORTISONE [Concomitant]
     Active Substance: CORTISONE\HYDROCORTISONE
     Indication: PREMEDICATION
  5. ALLEGRA [Concomitant]
     Active Substance: FEXOFENADINE HYDROCHLORIDE
     Indication: PREMEDICATION
  6. COLCHICINE. [Concomitant]
     Active Substance: COLCHICINE
     Route: 065
  7. DEPURA [Concomitant]
     Active Substance: CHOLECALCIFEROL
     Route: 065
  8. MABTHERA [Suspect]
     Active Substance: RITUXIMAB
     Indication: SYSTEMIC LUPUS ERYTHEMATOSUS
     Route: 042
     Dates: start: 201101
  9. OMEPRAZOL [Concomitant]
     Active Substance: OMEPRAZOLE
     Indication: ANXIETY
  10. DEPAKENE [Concomitant]
     Active Substance: VALPROIC ACID
     Route: 065
  11. METOCLOPRAMIDE. [Concomitant]
     Active Substance: METOCLOPRAMIDE
     Indication: NAUSEA
     Route: 065
  12. METOCLOPRAMIDE. [Concomitant]
     Active Substance: METOCLOPRAMIDE
     Indication: GASTRIC DISORDER
  13. ATENOLOL. [Concomitant]
     Active Substance: ATENOLOL
     Indication: HYPERTENSION
     Route: 065
  14. OMEPRAZOL [Concomitant]
     Active Substance: OMEPRAZOLE
     Indication: ABDOMINAL PAIN UPPER
  15. RIVOTRIL [Concomitant]
     Active Substance: CLONAZEPAM
     Route: 065
  16. TECNOMET [Concomitant]
     Active Substance: METHOTREXATE
     Route: 065
  17. FOLIC ACID. [Concomitant]
     Active Substance: FOLIC ACID
     Route: 065
  18. INDAPEN [Concomitant]
     Active Substance: INDAPAMIDE
     Route: 065
  19. OMEPRAZOL [Concomitant]
     Active Substance: OMEPRAZOLE
     Indication: DEPRESSION
     Route: 065
  20. BROMOPRIDE [Concomitant]
     Active Substance: BROMOPRIDE
     Dosage: 40 DROPS DAILY
     Route: 065
  21. PREDNISONE. [Concomitant]
     Active Substance: PREDNISONE
     Route: 065
  22. VONAU [Concomitant]
     Active Substance: ONDANSETRON HYDROCHLORIDE
     Indication: NAUSEA
  23. GLIFAGE [Concomitant]
     Active Substance: METFORMIN HYDROCHLORIDE
     Indication: DIABETES MELLITUS
     Route: 065
  24. SIMVASTATIN. [Concomitant]
     Active Substance: SIMVASTATIN
     Indication: BLOOD CHOLESTEROL ABNORMAL
     Route: 065
  25. ALLEGRA-D [Concomitant]
     Active Substance: FEXOFENADINE\PSEUDOEPHEDRINE
     Dosage: 3 DAYS BEFORE AND AFTER MABTHERA INFUSION
     Route: 065
  26. MABTHERA [Suspect]
     Active Substance: RITUXIMAB
     Indication: RHEUMATOID ARTHRITIS
     Route: 042
     Dates: start: 201008
  27. MABTHERA [Suspect]
     Active Substance: RITUXIMAB
     Route: 042
     Dates: start: 201107
  28. FLUOXETINE [Concomitant]
     Active Substance: FLUOXETINE HYDROCHLORIDE
     Route: 065
  29. PREDNISONE. [Concomitant]
     Active Substance: PREDNISONE
     Route: 065
  30. VELIJA [Concomitant]
     Active Substance: DULOXETINE HYDROCHLORIDE
     Indication: NEUROPATHY PERIPHERAL
     Route: 065
  31. MABTHERA [Suspect]
     Active Substance: RITUXIMAB
     Dosage: LATEST RECEIVED INFUSION:19/JUN/2017
     Route: 042
     Dates: start: 20150910
  32. METFORMIN [Concomitant]
     Active Substance: METFORMIN HYDROCHLORIDE
     Indication: DIABETES MELLITUS
     Route: 065
  33. PREDSIM [Concomitant]
     Active Substance: PREDNISOLONE
     Route: 065
  34. CYCLOBENZAPRINE. [Concomitant]
     Active Substance: CYCLOBENZAPRINE
     Indication: FIBROMYALGIA
     Route: 065
  35. QUETIAPINE. [Concomitant]
     Active Substance: QUETIAPINE
     Indication: DEPRESSION
     Route: 065
  36. CLONAZEPAM. [Concomitant]
     Active Substance: CLONAZEPAM
     Indication: DEPRESSION
     Route: 065
  37. SIMVASTATIN. [Concomitant]
     Active Substance: SIMVASTATIN
     Route: 065
  38. DEPAKENE [Concomitant]
     Active Substance: VALPROIC ACID
     Indication: SEIZURE
     Route: 065
  39. QUETIAPINE. [Concomitant]
     Active Substance: QUETIAPINE
     Route: 065
  40. MELOXICAM. [Concomitant]
     Active Substance: MELOXICAM
     Indication: FIBROMYALGIA
  41. CLONAZEPAM. [Concomitant]
     Active Substance: CLONAZEPAM
     Indication: ANXIETY
  42. TECNOMET [Concomitant]
     Active Substance: METHOTREXATE
     Dosage: 2, 5 3 TABLETS ON MONDAY, AND 3 TABLETS ON TUESDAY FOR LUPUS
     Route: 065

REACTIONS (15)
  - Hepatic function abnormal [Not Recovered/Not Resolved]
  - Haematuria [Recovering/Resolving]
  - Nephrolithiasis [Unknown]
  - Headache [Not Recovered/Not Resolved]
  - Influenza [Recovered/Resolved]
  - Nephrocalcinosis [Not Recovered/Not Resolved]
  - Leiomyoma [Not Recovered/Not Resolved]
  - Pain in extremity [Recovering/Resolving]
  - Furuncle [Not Recovered/Not Resolved]
  - Headache [Unknown]
  - Formication [Unknown]
  - Throat tightness [Recovered/Resolved]
  - Hepatic neoplasm [Unknown]
  - Muscular weakness [Recovering/Resolving]
  - Renal cyst [Not Recovered/Not Resolved]

NARRATIVE: CASE EVENT DATE: 20120602
